FAERS Safety Report 19770550 (Version 2)
Quarter: 2021Q3

REPORT INFORMATION
  Report Type: Spontaneous
  Country: US (occurrence: US)
  Receive Date: 20210831
  Receipt Date: 20210831
  Transmission Date: 20211014
  Serious: No
  Sender: FDA-Public Use
  Company Number: US-ORGANON-O2108USA002146

PATIENT
  Age: 36 Year
  Sex: Female

DRUGS (1)
  1. NEXPLANON [Suspect]
     Active Substance: ETONOGESTREL
     Dosage: 1 IMPLANT (ONE TIME DOSE) LEFT ARM
     Route: 059
     Dates: start: 20170412

REACTIONS (2)
  - Incorrect product administration duration [Unknown]
  - Discomfort [Unknown]

NARRATIVE: CASE EVENT DATE: 20200412
